FAERS Safety Report 18492406 (Version 2)
Quarter: 2020Q4

REPORT INFORMATION
  Report Type: Spontaneous
  Country: DE (occurrence: DE)
  Receive Date: 20201111
  Receipt Date: 20201117
  Transmission Date: 20210114
  Serious: Yes (Other)
  Sender: FDA-Public Use
  Company Number: DE-BAUSCH-BL-2020-028590

PATIENT
  Age: 83 Year
  Sex: Male

DRUGS (3)
  1. BENZODODECINIUM CHLORIDE [Suspect]
     Active Substance: BENZODODECINIUM
     Indication: POSTOPERATIVE CARE
     Route: 047
     Dates: end: 2020
  2. DEXAGEL [Suspect]
     Active Substance: DEXAMETHASONE SODIUM PHOSPHATE
     Indication: POSTOPERATIVE CARE
     Route: 047
     Dates: end: 2020
  3. PREDNI-OPHTAL GEL [Suspect]
     Active Substance: PREDNISOLONE ACETATE
     Indication: PRODUCT USED FOR UNKNOWN INDICATION
     Route: 065
     Dates: start: 2020

REACTIONS (7)
  - Abnormal sensation in eye [Unknown]
  - Cerebral disorder [Unknown]
  - Eye allergy [Unknown]
  - Visual acuity reduced [Unknown]
  - Intraocular pressure test abnormal [Not Recovered/Not Resolved]
  - Photosensitivity reaction [Not Recovered/Not Resolved]
  - Product residue present [Unknown]

NARRATIVE: CASE EVENT DATE: 2020
